FAERS Safety Report 6785798-X (Version None)
Quarter: 2010Q2

REPORT INFORMATION
  Report Type: 
  Country: None (occurrence: None)
  Receive Date: 20100623
  Receipt Date: 20100614
  Transmission Date: 20101027
  Serious: Yes (Other)
  Sender: FDA-Public Use
  Company Number: SA-MPIJNJ-2010-03067

PATIENT

DRUGS (4)
  1. VELCADE [Suspect]
     Indication: MULTIPLE MYELOMA
     Dosage: 1.3 MG/M2, UNK
  2. VELCADE [Suspect]
     Dosage: 1 MG/M2, UNK
  3. VELCADE [Suspect]
     Dosage: 1.3 MG/M2, UNK
     Dates: end: 20100610
  4. DEXAMETHASONE ACETATE [Concomitant]
     Indication: MULTIPLE MYELOMA
     Dosage: 16 MG, UNK
     Dates: start: 20100301, end: 20100315

REACTIONS (2)
  - BLEPHARITIS [None]
  - CHALAZION [None]
